FAERS Safety Report 17762233 (Version 1)
Quarter: 2020Q2

REPORT INFORMATION
  Report Type: Spontaneous
  Country: US (occurrence: US)
  Receive Date: 20200508
  Receipt Date: 20200508
  Transmission Date: 20200714
  Serious: Yes (Other)
  Sender: FDA-Public Use
  Company Number: US-NOVOPROD-727089

PATIENT
  Age: 65 Year
  Sex: Male

DRUGS (1)
  1. OZEMPIC [Suspect]
     Active Substance: SEMAGLUTIDE
     Indication: TYPE 2 DIABETES MELLITUS
     Dosage: 1 MG, QW
     Route: 058
     Dates: start: 2019, end: 20200501

REACTIONS (9)
  - Oedema [Not Recovered/Not Resolved]
  - Condition aggravated [Not Recovered/Not Resolved]
  - Injection site bruising [Not Recovered/Not Resolved]
  - Cardiovascular disorder [Unknown]
  - Condition aggravated [Recovering/Resolving]
  - Blood glucose increased [Recovering/Resolving]
  - Neuralgia [Recovering/Resolving]
  - Therapeutic product effect decreased [Unknown]
  - Peripheral artery occlusion [Recovered/Resolved]

NARRATIVE: CASE EVENT DATE: 202003
